FAERS Safety Report 21656157 (Version 6)
Quarter: 2023Q1

REPORT INFORMATION
  Report Type: Report from Study
  Country: JP (occurrence: JP)
  Receive Date: 20221129
  Receipt Date: 20230321
  Transmission Date: 20230417
  Serious: Yes (Other)
  Sender: FDA-Public Use
  Company Number: JP-ASTELLAS-2022JP017086

PATIENT
  Age: 68 Year
  Sex: Male
  Weight: 64.9 kg

DRUGS (15)
  1. ENFORTUMAB VEDOTIN [Suspect]
     Active Substance: ENFORTUMAB VEDOTIN
     Indication: Transitional cell carcinoma
     Route: 041
     Dates: start: 20220217
  2. ENFORTUMAB VEDOTIN [Suspect]
     Active Substance: ENFORTUMAB VEDOTIN
     Dosage: 63.84 (1 MG/KG), UNKNOWN FREQ.
     Route: 041
     Dates: start: 20220404, end: 20220411
  3. FEBUXOSTAT [Concomitant]
     Active Substance: FEBUXOSTAT
     Indication: Product used for unknown indication
     Dosage: UNK UNK, UNKNOWN FREQ.
     Route: 048
  4. OMIDENEPAG ISOPROPYL [Concomitant]
     Active Substance: OMIDENEPAG ISOPROPYL
     Indication: Product used for unknown indication
     Dosage: UNK UNK, UNKNOWN FREQ.
     Route: 065
  5. BUNAZOSIN HYDROCHLORIDE [Concomitant]
     Active Substance: BUNAZOSIN HYDROCHLORIDE
     Indication: Product used for unknown indication
     Dosage: UNK UNK, UNKNOWN FREQ.
     Route: 065
  6. DORMOLOL [Concomitant]
     Indication: Product used for unknown indication
     Dosage: UNK UNK, UNKNOWN FREQ.
     Route: 065
  7. CLOBETASOL [Concomitant]
     Active Substance: CLOBETASOL
     Indication: Rash erythematous
     Dosage: UNK UNK, UNKNOWN FREQ.
     Route: 065
  8. PREDONINE [Concomitant]
     Active Substance: PREDNISOLONE
     Indication: Rash erythematous
     Route: 048
     Dates: start: 20220304, end: 20220307
  9. PREDONINE [Concomitant]
     Active Substance: PREDNISOLONE
     Route: 048
     Dates: start: 20220308, end: 20220310
  10. PREDONINE [Concomitant]
     Active Substance: PREDNISOLONE
     Dosage: 15 MG/10 MG, TWICE DAILY
     Route: 048
     Dates: start: 20220311, end: 20220316
  11. PREDONINE [Concomitant]
     Active Substance: PREDNISOLONE
     Route: 048
     Dates: start: 20220317, end: 20220323
  12. PREDONINE [Concomitant]
     Active Substance: PREDNISOLONE
     Dosage: 10 MG/5 MG, TWICE DAILY
     Route: 048
     Dates: start: 20220324, end: 20220327
  13. PREDONINE [Concomitant]
     Active Substance: PREDNISOLONE
     Route: 048
     Dates: start: 20220328, end: 20220403
  14. PREDONINE [Concomitant]
     Active Substance: PREDNISOLONE
     Route: 048
     Dates: start: 20220404, end: 20220410
  15. GLYCOSAMINOGLYCANS [Concomitant]
     Active Substance: GLYCOSAMINOGLYCANS
     Indication: Rash erythematous
     Dosage: ADEQUATE DOSE, TWICE DAILY
     Route: 050
     Dates: start: 20220226, end: 20220404

REACTIONS (1)
  - Myelosuppression [Recovered/Resolved]

NARRATIVE: CASE EVENT DATE: 20220411
